FAERS Safety Report 8808889 (Version 1)
Quarter: 2012Q4

REPORT INFORMATION
  Report Type: Spontaneous
  Country: US (occurrence: None)
  Receive Date: 20120920
  Receipt Date: 20120920
  Transmission Date: 20130627
  Serious: No
  Sender: FDA-Public Use
  Company Number: None

PATIENT
  Sex: Female
  Weight: 61.24 kg

DRUGS (1)
  1. METOPROLOL [Suspect]
     Indication: HEARTBEATS IRREGULAR
     Dosage: 1 TABLET - TWICE DAILY BY MOUTH
     Route: 048
     Dates: start: 20120831

REACTIONS (6)
  - Terminal insomnia [None]
  - Chills [None]
  - Nausea [None]
  - Arthralgia [None]
  - Pain [None]
  - Asthenia [None]
